FAERS Safety Report 9836982 (Version 1)
Quarter: 2014Q1

REPORT INFORMATION
  Report Type: Spontaneous
  Country: US (occurrence: US)
  Receive Date: 20140123
  Receipt Date: 20140123
  Transmission Date: 20141002
  Serious: No
  Sender: FDA-Public Use
  Company Number: US-PFIZER INC-2014019098

PATIENT
  Age: 64 Year
  Sex: Female
  Weight: 94.33 kg

DRUGS (4)
  1. NEURONTIN [Suspect]
     Indication: FIBROMYALGIA
     Dosage: UNK
  2. NEURONTIN [Suspect]
     Indication: ARTHRITIS
  3. NEURONTIN [Suspect]
     Indication: ARTHRALGIA
  4. NEURONTIN [Suspect]
     Indication: MIGRAINE

REACTIONS (2)
  - Off label use [Unknown]
  - Drug ineffective for unapproved indication [Unknown]
